FAERS Safety Report 24544165 (Version 1)
Quarter: 2024Q4

REPORT INFORMATION
  Report Type: Spontaneous
  Country: JP (occurrence: JP)
  Receive Date: 20241024
  Receipt Date: 20241024
  Transmission Date: 20250114
  Serious: Yes (Death, Hospitalization)
  Sender: MYLAN
  Company Number: JP-MYLANLABS-2024M1095546

PATIENT
  Age: 56 Year
  Sex: Male

DRUGS (9)
  1. PREDNISOLONE [Suspect]
     Active Substance: PREDNISOLONE
     Indication: Protein-losing gastroenteropathy
     Dosage: FOR 3 YEARS
     Route: 048
  2. PREDNISOLONE [Suspect]
     Active Substance: PREDNISOLONE
     Indication: Ascites
  3. VANCOMYCIN [Suspect]
     Active Substance: VANCOMYCIN
     Indication: Pneumonia
     Route: 042
     Dates: end: 202304
  4. ALBUMINAR [Suspect]
     Active Substance: ALBUMIN HUMAN
     Indication: Protein-losing gastroenteropathy
     Dosage: TWICE
     Route: 042
  5. ALBUMINAR [Suspect]
     Active Substance: ALBUMIN HUMAN
     Indication: Ascites
  6. SPIRONOLACTONE [Suspect]
     Active Substance: SPIRONOLACTONE
     Indication: Protein-losing gastroenteropathy
     Dosage: FOR 3 YEARS
     Route: 048
  7. SPIRONOLACTONE [Suspect]
     Active Substance: SPIRONOLACTONE
     Indication: Ascites
  8. VORICONAZOLE [Suspect]
     Active Substance: VORICONAZOLE
     Indication: Pneumonia
     Route: 065
     Dates: end: 202304
  9. AMPICILLIN SODIUM\SULBACTAM SODIUM [Suspect]
     Active Substance: AMPICILLIN SODIUM\SULBACTAM SODIUM
     Indication: Pneumonia
     Route: 065
     Dates: end: 202304

REACTIONS (1)
  - Drug ineffective [Fatal]
